FAERS Safety Report 6244495-X (Version None)
Quarter: 2009Q2

REPORT INFORMATION
  Report Type: 
  Country: None (occurrence: None)
  Receive Date: 20090625
  Receipt Date: 20090615
  Transmission Date: 20091009
  Serious: Yes (Other)
  Sender: FDA-Public Use
  Company Number: US-BAYER-200911827BCC

PATIENT
  Sex: Female
  Weight: 52 kg

DRUGS (1)
  1. ASPIRIN [Suspect]
     Indication: STRESS
     Route: 048
     Dates: start: 20040101

REACTIONS (5)
  - ASTHENIA [None]
  - DRUG DEPENDENCE [None]
  - DRY SKIN [None]
  - SKIN DISCOLOURATION [None]
  - WEIGHT DECREASED [None]
